FAERS Safety Report 5889896-4 (Version None)
Quarter: 2008Q3

REPORT INFORMATION
  Report Type: 
  Country: None (occurrence: None)
  Receive Date: 20080919
  Receipt Date: 20080909
  Transmission Date: 20090109
  Serious: Yes (Death, Hospitalization, Other)
  Sender: FDA-Public Use
  Company Number: PHBS2008CA05696

PATIENT
  Age: 43 Year
  Sex: Male

DRUGS (6)
  1. CYCLOSPORINE [Suspect]
     Indication: LUNG TRANSPLANT
  2. BASILIXIMAB [Suspect]
     Indication: LUNG TRANSPLANT
  3. MYCOPHENOLATE MOFETIL [Suspect]
     Indication: LUNG TRANSPLANT
  4. PREDNISONE [Suspect]
     Indication: LUNG TRANSPLANT
     Dosage: 0.5 MG/KG/DAY
  5. METHYLPREDNISOLONE [Suspect]
     Indication: LUNG TRANSPLANT
     Dosage: 7MG PER KG
  6. AMPHOTERICIN B [Suspect]
     Route: 061

REACTIONS (14)
  - ABSCESS LIMB [None]
  - ANEURYSM REPAIR [None]
  - ARTHRITIS FUNGAL [None]
  - DEBRIDEMENT [None]
  - DIABETES MELLITUS [None]
  - INFECTIVE THROMBOSIS [None]
  - MUCORMYCOSIS [None]
  - MUSCLE OPERATION [None]
  - MYCOTIC ANEURYSM [None]
  - PSEUDOMONAS INFECTION [None]
  - RENAL FAILURE [None]
  - SKIN GRAFT [None]
  - WOUND NECROSIS [None]
  - ZYGOMYCOSIS [None]
